FAERS Safety Report 8369101-X (Version None)
Quarter: 2012Q2

REPORT INFORMATION
  Report Type: 
  Country: None (occurrence: None)
  Receive Date: 20120516
  Receipt Date: 20120516
  Transmission Date: 20120825
  Serious: Yes (Other)
  Sender: FDA-Public Use
  Company Number: None

PATIENT
  Age: 67 Year
  Sex: Female
  Weight: 120 kg

DRUGS (2)
  1. CEFTAROLINE FOSAMIL 600 MG FOREST PHARMACEUTICALS [Suspect]
     Indication: SKIN ULCER
     Dosage: 300 MG Q12H IV
     Route: 042
     Dates: start: 20120201, end: 20120330
  2. CEFTAROLINE FOSAMIL 600 MG FOREST PHARMACEUTICALS [Suspect]
     Indication: OSTEOMYELITIS
     Dosage: 300 MG Q12H IV
     Route: 042
     Dates: start: 20120201, end: 20120330

REACTIONS (1)
  - LEUKOPENIA [None]
